FAERS Safety Report 23106313 (Version 1)
Quarter: 2023Q4

REPORT INFORMATION
  Report Type: Spontaneous
  Country: IT (occurrence: IT)
  Receive Date: 20231025
  Receipt Date: 20231025
  Transmission Date: 20240109
  Serious: Yes (Hospitalization, Other)
  Sender: FDA-Public Use
  Company Number: IT-CHEPLA-2023012636

PATIENT
  Age: 61 Year
  Sex: Male
  Weight: 83.5 kg

DRUGS (6)
  1. PACLITAXEL [Suspect]
     Active Substance: PACLITAXEL
     Indication: Epiglottic cancer
     Dosage: ROA: INTRAVENOUS INFUSION, DAYS 1, 8, AND 15; 5 FULL DOSES ADMINISTERED
     Route: 042
     Dates: start: 20230817, end: 20230921
  2. PACLITAXEL [Suspect]
     Active Substance: PACLITAXEL
     Indication: Squamous cell carcinoma of pharynx
  3. BUPARLISIB [Suspect]
     Active Substance: BUPARLISIB
     Indication: Epiglottic cancer
     Route: 048
     Dates: start: 20230817, end: 20230926
  4. BUPARLISIB [Suspect]
     Active Substance: BUPARLISIB
     Indication: Squamous cell carcinoma of pharynx
  5. ASPIRIN [Concomitant]
     Active Substance: ASPIRIN
     Indication: Product used for unknown indication
     Dates: start: 2021
  6. LAMIVUDINE [Concomitant]
     Active Substance: LAMIVUDINE
     Indication: Product used for unknown indication
     Dates: start: 202303

REACTIONS (2)
  - Pneumothorax [Not Recovered/Not Resolved]
  - Product use in unapproved indication [Recovered/Resolved]

NARRATIVE: CASE EVENT DATE: 20230817
